FAERS Safety Report 4910259-X (Version None)
Quarter: 2006Q1

REPORT INFORMATION
  Report Type: 
  Country: None (occurrence: None)
  Receive Date: 20060209
  Receipt Date: 20060124
  Transmission Date: 20060701
  Serious: Yes (Death, Other)
  Sender: FDA-Public Use
  Company Number: US200601004243

PATIENT
  Age: 22 Year
  Sex: Male

DRUGS (2)
  1. PROZAC [Suspect]
     Indication: AFFECTIVE DISORDER
     Dosage: 120 MG, DAILY (1/D)
  2. WELLBUTRIN [Concomitant]

REACTIONS (3)
  - CONVULSION [None]
  - DROWNING [None]
  - PRESCRIBED OVERDOSE [None]
